FAERS Safety Report 24009543 (Version 1)
Quarter: 2024Q2

REPORT INFORMATION
  Report Type: Spontaneous
  Country: JP (occurrence: JP)
  Receive Date: 20240625
  Receipt Date: 20240625
  Transmission Date: 20240716
  Serious: Yes (Other)
  Sender: FDA-Public Use
  Company Number: JP-002147023-NVSJ2024JP007479

PATIENT
  Age: 32 Year
  Sex: Male

DRUGS (1)
  1. CYCLOSPORINE [Suspect]
     Active Substance: CYCLOSPORINE
     Indication: Evans syndrome
     Dosage: UNK
     Route: 065

REACTIONS (2)
  - Squamous cell carcinoma of skin [Unknown]
  - Aspergillus infection [Unknown]
